FAERS Safety Report 24873882 (Version 1)
Quarter: 2025Q1

REPORT INFORMATION
  Report Type: Spontaneous
  Country: US (occurrence: None)
  Receive Date: 20250121
  Receipt Date: 20250121
  Transmission Date: 20250408
  Serious: Yes (Hospitalization)
  Sender: FDA-CTU
  Company Number: None

PATIENT
  Age: 67 Year
  Sex: Female
  Weight: 74.25 kg

DRUGS (9)
  1. COMPAZINE [Suspect]
     Active Substance: PROCHLORPERAZINE MALEATE
     Indication: Migraine
     Dates: start: 20250118, end: 20250118
  2. TORSEMIDE [Concomitant]
     Active Substance: TORSEMIDE
  3. POTASSIUM [Concomitant]
     Active Substance: POTASSIUM
  4. SINGULAIR [Concomitant]
     Active Substance: MONTELUKAST SODIUM
  5. ATORVASTATIN [Concomitant]
     Active Substance: ATORVASTATIN
  6. OMEPRAZOLE [Concomitant]
     Active Substance: OMEPRAZOLE
  7. TIZANIDINE [Concomitant]
     Active Substance: TIZANIDINE
  8. MIRAPEX [Concomitant]
     Active Substance: PRAMIPEXOLE DIHYDROCHLORIDE
  9. CREON [Concomitant]
     Active Substance: PANCRELIPASE AMYLASE\PANCRELIPASE LIPASE\PANCRELIPASE PROTEASE

REACTIONS (5)
  - Migraine [None]
  - Dystonia [None]
  - Cerebrovascular accident [None]
  - Headache [None]
  - Documented hypersensitivity to administered product [None]

NARRATIVE: CASE EVENT DATE: 20250118
